FAERS Safety Report 17534744 (Version 2)
Quarter: 2020Q2

REPORT INFORMATION
  Report Type: Spontaneous
  Country: US (occurrence: US)
  Receive Date: 20200312
  Receipt Date: 20200408
  Transmission Date: 20200713
  Serious: Yes (Hospitalization, Other)
  Sender: FDA-Public Use
  Company Number: US-PFIZER INC-2019229239

PATIENT
  Age: 55 Year
  Sex: Female
  Weight: 63 kg

DRUGS (27)
  1. LYRICA [Suspect]
     Active Substance: PREGABALIN
     Dosage: 25 MG, 3X/DAY
     Route: 048
     Dates: start: 20190624, end: 201906
  2. LYRICA [Suspect]
     Active Substance: PREGABALIN
     Dosage: 50 MG, 3X/DAY
     Route: 048
     Dates: start: 20190627, end: 2019
  3. DEXAMETHASONE. [Concomitant]
     Active Substance: DEXAMETHASONE
     Dosage: 2 MG, DAILY (TAKE 2 TABLETS BY MOUTH EVERY MORNING THEN 1 TABLET IN THE AFTERNOON, AND 1 TABLET IN )
     Route: 048
  4. LORAZEPAM. [Concomitant]
     Active Substance: LORAZEPAM
     Dosage: 2 MG, 1X/DAY (PATIENT TAKING DIFFERENTLY TAKE 2 MG BY MOUTH NIGHTLY)
     Route: 048
  5. CALCIUM CARBONATE. [Concomitant]
     Active Substance: CALCIUM CARBONATE
     Dosage: 2500 MG, DAILY
     Route: 048
  6. CYANOCOBALAMIN. [Concomitant]
     Active Substance: CYANOCOBALAMIN
     Dosage: 1000 UG, DAILY (TAKE 1,000 MCG BY MOUTH DAILY TAKE AS DIRECTED)
     Route: 048
  7. NP THYROID [Concomitant]
     Active Substance: LEVOTHYROXINE\LIOTHYRONINE
     Dosage: 120 MG, DAILY (4 TABLETS BY MOUTH ONCE DAILY)
     Route: 048
  8. CELEBREX [Concomitant]
     Active Substance: CELECOXIB
     Indication: PAIN
     Dosage: UNK
  9. FOLIC ACID. [Concomitant]
     Active Substance: FOLIC ACID
     Dosage: 800 UG, DAILY
     Route: 048
  10. OMEPRAZOLE. [Concomitant]
     Active Substance: OMEPRAZOLE
     Dosage: 20 MG, DAILY
     Route: 048
  11. OXYCODONE [Concomitant]
     Active Substance: OXYCODONE
     Indication: PAIN
     Dosage: UNK UNK, AS NEEDED (TAKE 0.5-1 TABLETS (5-10 MG TOTAL) BY MOUTH4 (FOUR) TIMES A DAY AS NEEDED)
     Route: 048
  12. METOPROLOL TARTRATE. [Concomitant]
     Active Substance: METOPROLOL TARTRATE
     Dosage: 12.5 MG, 2X/DAY
     Route: 048
  13. PRAVASTATIN. [Concomitant]
     Active Substance: PRAVASTATIN
     Dosage: 40 MG, UNK
  14. LYRICA [Suspect]
     Active Substance: PREGABALIN
     Indication: PAIN
     Dosage: 25 MG, 3X/DAY
     Route: 048
     Dates: start: 20190523, end: 2019
  15. FUROSEMIDE. [Concomitant]
     Active Substance: FUROSEMIDE
     Dosage: 40 MG, AS NEEDED (TAKE 1 TABLET (40 MG TOTAL) BY MOUTH DAILY AS NEEDED )
     Route: 048
  16. FERROUS SULFATE. [Concomitant]
     Active Substance: FERROUS SULFATE
     Dosage: 325 MG, DAILY (TAKE 1 TABLET (325 MG TOTAL) BY MOUTH DAILY WITH BREAKFAST)
     Route: 048
  17. DULOXETINE. [Concomitant]
     Active Substance: DULOXETINE
     Dosage: 60 MG, DAILY (TAKE 1 CAPSULE (60 MG TOTAL) BY MOUTH DAILY)
     Route: 048
  18. LORATADINE. [Concomitant]
     Active Substance: LORATADINE
     Indication: HYPERSENSITIVITY
     Dosage: 10 MG, AS NEEDED (TAKE 1 TABLET (10 MG TOTAL) BY MOUTH DAILY AS NEEDED FOR ALLERGIES/NIGHTLY)
     Route: 048
  19. LORAZEPAM. [Concomitant]
     Active Substance: LORAZEPAM
     Indication: ANXIETY
     Dosage: 1 MG, AS NEEDED (TAKE 1 TABLET (1 MG TOTAL) BY MOUTH EVERY 8 (EIGHT) HOURS AS NEEDED)
     Route: 048
  20. CHOLECALCIFEROL [Concomitant]
     Active Substance: CHOLECALCIFEROL
     Dosage: 2000 IU, DAILY (TAKE 2,000 UNITS BY MOUTH DAILY)
     Route: 048
  21. NAPROXEN. [Concomitant]
     Active Substance: NAPROXEN
     Indication: PAIN
     Dosage: 250 MG, AS NEEDED (TAKE 1 TABLET (250 MG TOTAL) BY MOUTH 2 (TWO) TIMES A DAY AS NEEDED))
     Route: 048
  22. MECLIZINE HCL [Concomitant]
     Active Substance: MECLIZINE HYDROCHLORIDE
     Indication: DIZZINESS
     Dosage: 12.5 MG, AS NEEDED (TAKE 1 TABLET (12.5 MG TOTAL) BY MOUTH 3 (THREE) TIMES A DAY)
     Route: 048
  23. LYRICA [Suspect]
     Active Substance: PREGABALIN
     Indication: FIBROMYALGIA
     Dosage: 150 MG, 3X/DAY [TAKE 1 CAPSULE (150 MG TOTAL) BY MOUTH 3 (THREE) TIMES A DAY]
     Route: 048
  24. LYRICA [Suspect]
     Active Substance: PREGABALIN
     Dosage: 100 MG, 3X/DAY
     Route: 048
     Dates: start: 20190913
  25. CELECOXIB. [Concomitant]
     Active Substance: CELECOXIB
     Indication: PAIN
     Dosage: 100 MG, AS NEEDED (TAKE 1 CAPSULE (TWO TIMES A DAY AS NEEDED)
     Route: 048
  26. DEXAMETHASONE. [Concomitant]
     Active Substance: DEXAMETHASONE
     Dosage: 0.5 MG, DAILY (TAKE 0.5 MG BY MOUTH DAILY WITH LUNCH)
     Route: 048
  27. BACLOFEN. [Concomitant]
     Active Substance: BACLOFEN
     Indication: MUSCLE SPASMS
     Dosage: 20 MG, AS NEEDED (TAKE I TABLET BY MOUTH FOUR TIMES A DAY IF NEEDED)
     Route: 048

REACTIONS (8)
  - Asthenia [Recovering/Resolving]
  - Hypoacusis [Unknown]
  - Iron deficiency anaemia [Unknown]
  - Delirium [Recovered/Resolved]
  - Paranoia [Recovered/Resolved]
  - Malaise [Unknown]
  - Dysphonia [Unknown]
  - Gait inability [Unknown]

NARRATIVE: CASE EVENT DATE: 20200309
